FAERS Safety Report 10236441 (Version 2)
Quarter: 2015Q4

REPORT INFORMATION
  Report Type: Spontaneous
  Country: FR (occurrence: FR)
  Receive Date: 20140613
  Receipt Date: 20151113
  Transmission Date: 20160304
  Serious: Yes (Hospitalization, Other)
  Sender: FDA-Public Use
  Company Number: FR-BRISTOL-MYERS SQUIBB COMPANY-21009253

PATIENT
  Age: 43 Year
  Sex: Male

DRUGS (18)
  1. IMODIUM [Concomitant]
     Active Substance: LOPERAMIDE HYDROCHLORIDE
     Indication: PRODUCT USED FOR UNKNOWN INDICATION
     Dosage: UNK
     Route: 048
  2. PARACETAMOL [Concomitant]
     Active Substance: ACETAMINOPHEN
     Indication: PRODUCT USED FOR UNKNOWN INDICATION
     Dosage: UNK
     Route: 065
  3. XANAX [Concomitant]
     Active Substance: ALPRAZOLAM
     Indication: PRODUCT USED FOR UNKNOWN INDICATION
     Dosage: TABLET
     Route: 048
  4. ERBITUX [Suspect]
     Active Substance: CETUXIMAB
     Indication: PRODUCT USED FOR UNKNOWN INDICATION
     Dosage: UNK
     Route: 042
     Dates: start: 201403
  5. VECTIBIX [Concomitant]
     Active Substance: PANITUMUMAB
     Indication: PRODUCT USED FOR UNKNOWN INDICATION
     Route: 065
  6. POLARAMINE [Suspect]
     Active Substance: DEXCHLORPHENIRAMINE MALEATE
     Indication: PREMEDICATION
  7. SMECTA [Concomitant]
     Active Substance: MONTMORILLONITE
     Indication: PRODUCT USED FOR UNKNOWN INDICATION
     Dosage: UNK
     Route: 048
  8. VERSATIS [Concomitant]
     Active Substance: LIDOCAINE
     Indication: PRODUCT USED FOR UNKNOWN INDICATION
     Dosage: UNK
     Route: 003
  9. STILNOX [Concomitant]
     Active Substance: ZOLPIDEM TARTRATE
     Indication: PRODUCT USED FOR UNKNOWN INDICATION
     Dosage: UNK
     Route: 048
  10. FOLIC ACID. [Suspect]
     Active Substance: FOLIC ACID
     Indication: PRODUCT USED FOR UNKNOWN INDICATION
     Dosage: UNK
     Route: 042
     Dates: start: 201403
  11. TRANXENE T-TAB [Suspect]
     Active Substance: CLORAZEPATE DIPOTASSIUM
     Indication: PREMEDICATION
     Dosage: UNK
     Route: 065
     Dates: start: 20140401, end: 20140401
  12. PRIMPERAN [Suspect]
     Active Substance: METOCLOPRAMIDE HYDROCHLORIDE
     Indication: PREMEDICATION
     Dosage: UNK
     Route: 048
     Dates: start: 20140401, end: 20140401
  13. POLARAMINE [Suspect]
     Active Substance: DEXCHLORPHENIRAMINE MALEATE
     Indication: HYPERSENSITIVITY
     Dosage: UNK
     Route: 042
     Dates: start: 20140401, end: 20140401
  14. FLUORO URACIL [Suspect]
     Active Substance: FLUOROURACIL
     Indication: PRODUCT USED FOR UNKNOWN INDICATION
     Dosage: UNK
     Route: 042
     Dates: start: 201403
  15. OXALIPLATIN. [Suspect]
     Active Substance: OXALIPLATIN
     Indication: PRODUCT USED FOR UNKNOWN INDICATION
     Dosage: UNK
     Route: 042
     Dates: start: 201403
  16. EMEND [Suspect]
     Active Substance: APREPITANT
     Indication: PREMEDICATION
     Dosage: UNK
     Route: 048
     Dates: start: 20140401, end: 20140401
  17. ZOPHREN                            /00955302/ [Suspect]
     Active Substance: ONDANSETRON
     Indication: PREMEDICATION
     Dosage: UNK
     Route: 065
     Dates: start: 20140401, end: 20140401
  18. OXYNORM [Concomitant]
     Active Substance: OXYCODONE HYDROCHLORIDE
     Indication: PRODUCT USED FOR UNKNOWN INDICATION
     Dosage: CAPSULE
     Route: 048

REACTIONS (7)
  - Thrombocytopenia [Recovered/Resolved]
  - Histiocytosis haematophagic [Recovered/Resolved]
  - Serum ferritin increased [Recovering/Resolving]
  - Jaundice [Recovered/Resolved]
  - Leukopenia [Recovered/Resolved]
  - Chills [Recovered/Resolved]
  - Blood bilirubin increased [Recovering/Resolving]

NARRATIVE: CASE EVENT DATE: 20140401
